FAERS Safety Report 8570547 (Version 6)
Quarter: 2012Q4

REPORT INFORMATION
  Report Type: Report from Study
  Country: JP (occurrence: JP)
  Receive Date: 20120521
  Receipt Date: 20121108
  Transmission Date: 20130627
  Serious: Yes (Hospitalization, Other)
  Sender: FDA-Public Use
  Company Number: JP-ASTELLAS-2012US004758

PATIENT
  Age: 51 Year
  Sex: Male
  Weight: 55 kg

DRUGS (38)
  1. ERLOTINIB TABLET [Suspect]
     Indication: ADENOCARCINOMA PANCREAS
     Dosage: 100 mg, UID/QD
     Route: 048
     Dates: start: 20110929, end: 20111004
  2. ERLOTINIB TABLET [Suspect]
     Dosage: 100 mg, UID/QD
     Route: 048
     Dates: start: 20111019, end: 20111214
  3. ERLOTINIB TABLET [Suspect]
     Dosage: 100 mg, UID/QD
     Route: 048
     Dates: start: 20111228, end: 20120226
  4. GEMCITABINE HYDROCHLORIDE [Suspect]
     Indication: ADENOCARCINOMA
     Dosage: 1000 mg/m2, UID/QD
     Route: 041
     Dates: start: 20110929, end: 20110929
  5. GEMCITABINE HYDROCHLORIDE [Suspect]
     Dosage: 1000 mg/m2, UID/QD
     Route: 041
     Dates: start: 20111019, end: 20111102
  6. GEMCITABINE HYDROCHLORIDE [Suspect]
     Dosage: 1000 mg/m2, UID/QD
     Route: 041
     Dates: start: 20111116, end: 20111116
  7. GEMCITABINE HYDROCHLORIDE [Suspect]
     Dosage: 1000 mg/m2, UID/QD
     Route: 041
     Dates: start: 20111130, end: 20111130
  8. GEMCITABINE HYDROCHLORIDE [Suspect]
     Dosage: 1000 mg/m2, UID/QD
     Route: 041
     Dates: start: 20111207, end: 20111207
  9. GEMCITABINE HYDROCHLORIDE [Suspect]
     Dosage: 1000 mg/m2, UID/QD
     Route: 041
     Dates: start: 20111207, end: 20111207
  10. GEMCITABINE HYDROCHLORIDE [Suspect]
     Dosage: 1000 mg/m2, UID/QD
     Route: 041
     Dates: start: 20111228, end: 20111228
  11. GEMCITABINE HYDROCHLORIDE [Suspect]
     Dosage: 1000 mg/m2, UID/QD
     Route: 041
     Dates: start: 20120104, end: 20120104
  12. GEMCITABINE HYDROCHLORIDE [Suspect]
     Dosage: 1000 mg/m2, UID/QD
     Route: 041
     Dates: start: 20120111, end: 20120111
  13. GEMCITABINE HYDROCHLORIDE [Suspect]
     Dosage: 1000 mg/m2, UID/QD
     Route: 041
     Dates: start: 20120125, end: 20120125
  14. GEMCITABINE HYDROCHLORIDE [Suspect]
     Dosage: 1000 mg/m2, UID/QD
     Route: 041
     Dates: start: 20120201, end: 20120201
  15. GEMCITABINE HYDROCHLORIDE [Suspect]
     Dosage: 1000 mg/m2, UID/QD
     Route: 041
     Dates: start: 20120208, end: 20120208
  16. GEMCITABINE HYDROCHLORIDE [Suspect]
     Dosage: 1000 mg/m2, UID/QD
     Route: 041
     Dates: start: 20120222, end: 20120222
  17. MEDET [Concomitant]
     Indication: DIABETES MELLITUS
     Dosage: 500 mg, UID/QD
     Route: 048
     Dates: start: 20111004
  18. MEDET [Concomitant]
     Dosage: 500 mg, UID/QD
     Route: 048
     Dates: start: 20111014, end: 20111025
  19. LIPANCREA [Concomitant]
     Indication: PRODUCT USED FOR UNKNOWN INDICATION
     Dosage: 450 mg, UID/QD
     Route: 048
     Dates: end: 20111004
  20. LIPANCREA [Concomitant]
     Dosage: 450 mg, UID/QD
     Route: 048
     Dates: start: 20121014, end: 20120226
  21. LIPANCREA [Concomitant]
     Dosage: 450 mg, UID/QD
     Route: 048
     Dates: start: 20120301
  22. BIO-THREE [Concomitant]
     Indication: PRODUCT USED FOR UNKNOWN INDICATION
     Dosage: 3 g, UID/QD
     Route: 048
     Dates: end: 20121004
  23. BIO-THREE [Concomitant]
     Dosage: 3 g, UID/QD
     Route: 048
     Dates: start: 20111006, end: 20120226
  24. BIO-THREE [Concomitant]
     Dosage: 3 g, UID/QD
     Route: 048
     Dates: start: 20120301
  25. TAKEPRON [Concomitant]
     Indication: PRODUCT USED FOR UNKNOWN INDICATION
     Dosage: 15 mg, UID/QD
     Route: 048
     Dates: end: 20111004
  26. TAKEPRON [Concomitant]
     Dosage: 15 mg, UID/QD
     Route: 048
     Dates: start: 20111009, end: 20120226
  27. TAKEPRON [Concomitant]
     Dosage: 15 mg, UID/QD
     Route: 048
     Dates: start: 20120301
  28. MEDICON [Concomitant]
     Indication: PRODUCT USED FOR UNKNOWN INDICATION
     Dosage: 45 mg, UID/QD
     Route: 048
     Dates: end: 20111004
  29. MELBIN [Concomitant]
     Indication: DIABETES MELLITUS
     Dosage: 500 mg, UID/QD
     Route: 048
     Dates: start: 20111026, end: 20111116
  30. LOXOPROFEN [Concomitant]
     Indication: PRODUCT USED FOR UNKNOWN INDICATION
     Dosage: 180 mg, UID/QD
     Route: 048
     Dates: start: 20111026, end: 20111213
  31. LOXOPROFEN [Concomitant]
     Dosage: 60 mg, UID/QD
     Route: 048
     Dates: start: 20111214, end: 20120110
  32. LOXOPROFEN [Concomitant]
     Dosage: 180 mg, UID/QD
     Route: 048
     Dates: start: 20120111
  33. OMEPRAL [Concomitant]
     Indication: PRODUCT USED FOR UNKNOWN INDICATION
     Dosage: 40 mg, UID/QD
     Route: 042
     Dates: start: 20111005, end: 20111008
  34. LOPEMIN [Concomitant]
     Indication: DIARRHOEA
     Dosage: 1 mg, Unknown/D
     Route: 048
     Dates: start: 20111207, end: 20120226
  35. LOPEMIN [Concomitant]
     Dosage: 1 mg, Unknown/D
     Route: 048
     Dates: start: 20120301
  36. GASTER [Concomitant]
     Indication: PRODUCT USED FOR UNKNOWN INDICATION
     Dosage: 20 mg, UID/QD
     Route: 042
     Dates: start: 20120228, end: 20120229
  37. DEXART [Concomitant]
     Indication: PRODUCT USED FOR UNKNOWN INDICATION
     Dosage: 6.6 mg, Unknown/D
     Route: 042
  38. GRANISETRON [Concomitant]
     Indication: PRODUCT USED FOR UNKNOWN INDICATION
     Dosage: 1 mg, Unknown/D
     Route: 042

REACTIONS (22)
  - Platelet count decreased [Recovered/Resolved]
  - Platelet count decreased [Recovering/Resolving]
  - Liver abscess [Recovering/Resolving]
  - Malignant neoplasm progression [Unknown]
  - Anaemia [Recovered/Resolved]
  - Hypoalbuminaemia [Recovering/Resolving]
  - Hyperglycaemia [Recovered/Resolved]
  - Haematuria [Recovering/Resolving]
  - White blood cell count decreased [Recovered/Resolved]
  - Back pain [Recovered/Resolved]
  - Hyperglycaemia [Recovering/Resolving]
  - Neutrophil count decreased [Recovered/Resolved]
  - Aspartate aminotransferase increased [Recovered/Resolved]
  - Blood bilirubin increased [Unknown]
  - Alanine aminotransferase increased [Unknown]
  - Pyrexia [Recovered/Resolved]
  - Dermatitis acneiform [Recovering/Resolving]
  - Insomnia [Unknown]
  - Paronychia [Recovered/Resolved]
  - Diarrhoea [Recovering/Resolving]
  - Cholangitis [Unknown]
  - Cholecystitis acute [Recovered/Resolved]
